FAERS Safety Report 26126307 (Version 1)
Quarter: 2025Q4

REPORT INFORMATION
  Report Type: Spontaneous
  Country: US (occurrence: US)
  Receive Date: 20251205
  Receipt Date: 20251205
  Transmission Date: 20260117
  Serious: Yes (Hospitalization)
  Sender: BAXTER
  Company Number: US-BAXTER-2025BAX025281

PATIENT
  Sex: Female

DRUGS (1)
  1. VANCOMYCIN HYDROCHLORIDE [Suspect]
     Active Substance: VANCOMYCIN HYDROCHLORIDE
     Indication: Skin infection
     Dosage: 1 G, IV ON PERIPHERAL FOREARM
     Route: 042
     Dates: start: 20251023, end: 20251023

REACTIONS (3)
  - Infusion site swelling [Unknown]
  - Infusion site erythema [Unknown]
  - Infusion site extravasation [Unknown]
